FAERS Safety Report 9882962 (Version 1)
Quarter: 2014Q1

REPORT INFORMATION
  Report Type: Spontaneous
  Country: US (occurrence: None)
  Receive Date: 20140205
  Receipt Date: 20140205
  Transmission Date: 20141002
  Serious: Yes (Other)
  Sender: FDA-Public Use
  Company Number: 2009S1006413

PATIENT
  Age: 50 Year
  Sex: Male
  Weight: 77.11 kg

DRUGS (2)
  1. FLEET PHOSPHO-SODA [Suspect]
     Indication: COLONOSCOPY
     Dosage: 2 IN 24 HOURS
     Route: 048
  2. LOTENSIN HCT [Concomitant]

REACTIONS (7)
  - Colonoscopy abnormal [None]
  - Hypertension [None]
  - Cough [None]
  - Oropharyngeal pain [None]
  - Renal failure [None]
  - Flank pain [None]
  - Muscle strain [None]
